FAERS Safety Report 18108985 (Version 3)
Quarter: 2020Q3

REPORT INFORMATION
  Report Type: Spontaneous
  Country: US (occurrence: US)
  Receive Date: 20200804
  Receipt Date: 20200814
  Transmission Date: 20201103
  Serious: No
  Sender: FDA-Public Use
  Company Number: US-PFIZER INC-2020293448

PATIENT
  Age: 68 Year
  Sex: Female
  Weight: 48.08 kg

DRUGS (3)
  1. CHANTIX [Suspect]
     Active Substance: VARENICLINE TARTRATE
     Dosage: 0.5 MG, 1X/DAY (0.5 MG BY MOUTH ONCE PER DAY)
     Route: 048
     Dates: start: 20200726, end: 20200729
  2. CHANTIX [Suspect]
     Active Substance: VARENICLINE TARTRATE
     Indication: SMOKING CESSATION THERAPY
     Dosage: 1 MG, DAILY (SAME AS CURRENT BUT THEN IT WENT TO 1 MG PER DAY AND IT WAS A DIFFERENT COLOR PILL)
     Dates: start: 201710
  3. CHANTIX [Suspect]
     Active Substance: VARENICLINE TARTRATE
     Dosage: UNK
     Dates: start: 20200530

REACTIONS (5)
  - Product prescribing error [Unknown]
  - Abnormal dreams [Recovered/Resolved]
  - Nausea [Recovered/Resolved]
  - Tobacco user [Not Recovered/Not Resolved]
  - Blood cholesterol increased [Unknown]

NARRATIVE: CASE EVENT DATE: 201710
